FAERS Safety Report 15681556 (Version 1)
Quarter: 2018Q4

REPORT INFORMATION
  Report Type: Report from Study
  Country: US (occurrence: US)
  Receive Date: 20181203
  Receipt Date: 20181203
  Transmission Date: 20190205
  Serious: Yes (Death)
  Sender: FDA-Public Use
  Company Number: US-BAUSCH-BL-2018-033719

PATIENT
  Age: 73 Year
  Sex: Female

DRUGS (1)
  1. XENAZINE [Suspect]
     Active Substance: TETRABENAZINE
     Indication: HUNTINGTON^S DISEASE
     Dosage: 270 (UNITS UNKNOWN)
     Route: 048
     Dates: start: 20170120, end: 20180827

REACTIONS (1)
  - Death [Fatal]

NARRATIVE: CASE EVENT DATE: 20180915
